FAERS Safety Report 13893119 (Version 1)
Quarter: 2017Q3

REPORT INFORMATION
  Report Type: Spontaneous
  Country: US (occurrence: US)
  Receive Date: 20170822
  Receipt Date: 20170822
  Transmission Date: 20171127
  Serious: No
  Sender: FDA-Public Use
  Company Number: US-ROCHE-1201656

PATIENT
  Sex: Male
  Weight: 85.5 kg

DRUGS (10)
  1. GEMZAR [Concomitant]
     Active Substance: GEMCITABINE HYDROCHLORIDE
  2. KADCYLA [Suspect]
     Active Substance: ADO-TRASTUZUMAB EMTANSINE
     Indication: CHOLANGIOCARCINOMA
     Route: 065
  3. TAXOTERE [Concomitant]
     Active Substance: DOCETAXEL
     Indication: DUCTAL ADENOCARCINOMA OF PANCREAS
  4. XELODA [Suspect]
     Active Substance: CAPECITABINE
     Indication: DUCTAL ADENOCARCINOMA OF PANCREAS
     Route: 065
  5. KADCYLA [Suspect]
     Active Substance: ADO-TRASTUZUMAB EMTANSINE
     Indication: OFF LABEL USE
  6. HERCEPTIN [Suspect]
     Active Substance: TRASTUZUMAB
     Indication: CHOLANGIOCARCINOMA
     Route: 065
  7. ABRAXANE [Suspect]
     Active Substance: PACLITAXEL
     Indication: CHOLANGIOCARCINOMA
     Route: 065
     Dates: start: 20130214
  8. VINORELBINE [Suspect]
     Active Substance: VINORELBINE\VINORELBINE TARTRATE
     Indication: GASTRIC CANCER
     Route: 065
  9. ELOXATIN [Concomitant]
     Active Substance: OXALIPLATIN
  10. IRINOTECAN [Concomitant]
     Active Substance: IRINOTECAN
     Indication: DUCTAL ADENOCARCINOMA OF PANCREAS

REACTIONS (8)
  - Neuropathy peripheral [Unknown]
  - Carbohydrate antigen 19-9 increased [Not Recovered/Not Resolved]
  - White blood cell count decreased [Unknown]
  - Gastrooesophageal reflux disease [Unknown]
  - Hypermetabolism [Unknown]
  - Tumour marker increased [Unknown]
  - Neurotoxicity [Unknown]
  - Drug ineffective [Unknown]
